FAERS Safety Report 5964827-7 (Version None)
Quarter: 2008Q4

REPORT INFORMATION
  Report Type: 
  Country: None (occurrence: None)
  Receive Date: 20081125
  Receipt Date: 20081008
  Transmission Date: 20090506
  Serious: No
  Sender: FDA-Public Use
  Company Number: US-AMGEN-KDL311108

PATIENT
  Sex: Female
  Weight: 117.5 kg

DRUGS (2)
  1. ENBREL [Suspect]
     Indication: RHEUMATOID ARTHRITIS
     Route: 058
     Dates: start: 20080801
  2. METHOTREXATE [Concomitant]

REACTIONS (11)
  - COUGH [None]
  - EYE SWELLING [None]
  - FLUID RETENTION [None]
  - INJECTION SITE ERYTHEMA [None]
  - INJECTION SITE PRURITUS [None]
  - INJECTION SITE WARMTH [None]
  - NASAL CONGESTION [None]
  - NASOPHARYNGITIS [None]
  - NIGHTMARE [None]
  - SWELLING FACE [None]
  - URTICARIA [None]
